FAERS Safety Report 5171244-9 (Version None)
Quarter: 2006Q4

REPORT INFORMATION
  Report Type: 
  Country: None (occurrence: None)
  Receive Date: 20061213
  Receipt Date: 20060601
  Transmission Date: 20070319
  Serious: Yes (Hospitalization)
  Sender: FDA-Public Use
  Company Number: US-AMGEN-STX181564

PATIENT
  Sex: Female

DRUGS (5)
  1. ENBREL [Suspect]
     Indication: RHEUMATOID ARTHRITIS
     Dates: start: 20001019, end: 20060101
  2. PREDNISONE TAB [Concomitant]
  3. PLAQUENIL [Concomitant]
  4. ARAVA [Concomitant]
  5. NSAIDS [Concomitant]

REACTIONS (4)
  - HYPERCHOLESTEROLAEMIA [None]
  - INCISION SITE COMPLICATION [None]
  - LUNG CANCER METASTATIC [None]
  - PYREXIA [None]
